FAERS Safety Report 25387530 (Version 1)
Quarter: 2025Q2

REPORT INFORMATION
  Report Type: Report from Study
  Country: ZA (occurrence: ZA)
  Receive Date: 20250603
  Receipt Date: 20250603
  Transmission Date: 20250717
  Serious: Yes (Other)
  Sender: ALEXION PHARMACEUTICALS
  Company Number: ZA-AstraZeneca-CH-00881117A

PATIENT
  Age: 87 Year

DRUGS (7)
  1. BUDESONIDE\FORMOTEROL [Suspect]
     Active Substance: BUDESONIDE\FORMOTEROL
     Indication: Chronic obstructive pulmonary disease
  2. BUDESONIDE\FORMOTEROL [Suspect]
     Active Substance: BUDESONIDE\FORMOTEROL
     Indication: Asthma
  3. ACETAMINOPHEN [Concomitant]
     Active Substance: ACETAMINOPHEN
  4. CELECOXIB [Concomitant]
     Active Substance: CELECOXIB
     Indication: Pain
  5. CELECOXIB [Concomitant]
     Active Substance: CELECOXIB
     Indication: Inflammation
  6. CELECOXIB [Concomitant]
     Active Substance: CELECOXIB
     Indication: Arthritis
  7. Rothrom [Concomitant]

REACTIONS (3)
  - Femur fracture [Unknown]
  - Injury [Unknown]
  - Product use issue [Unknown]
